FAERS Safety Report 7179178-5 (Version None)
Quarter: 2010Q4

REPORT INFORMATION
  Report Type: 
  Country: None (occurrence: None)
  Receive Date: 20101221
  Receipt Date: 20101210
  Transmission Date: 20110411
  Serious: Yes (Death, Other)
  Sender: FDA-Public Use
  Company Number: AT-ELI_LILLY_AND_COMPANY-AT201010001773

PATIENT
  Age: 68 Year
  Sex: Male

DRUGS (6)
  1. ALIMTA [Suspect]
     Indication: ADENOCARCINOMA
     Dosage: 500 MG/M2, UNK
     Route: 042
  2. FOLSAN [Concomitant]
  3. NOVALGIN [Concomitant]
     Route: 048
  4. PROTON PUMP INHIBITORS [Concomitant]
  5. HYDAL [Concomitant]
  6. VOLTAREN [Concomitant]

REACTIONS (6)
  - GENERAL PHYSICAL HEALTH DETERIORATION [None]
  - INFLAMMATORY MARKER INCREASED [None]
  - NEUTROPENIA [None]
  - PLEURAL EFFUSION [None]
  - PNEUMONIA [None]
  - ULCER HAEMORRHAGE [None]
